FAERS Safety Report 7825633-1 (Version None)
Quarter: 2011Q4

REPORT INFORMATION
  Report Type: 
  Country: None (occurrence: None)
  Receive Date: 20111019
  Receipt Date: 20111010
  Transmission Date: 20120403
  Serious: Yes (Hospitalization, Disabling, Other)
  Sender: FDA-Public Use
  Company Number: US-ASTRAZENECA-2011SE28740

PATIENT
  Age: 52 Year
  Sex: Male
  Weight: 115.2 kg

DRUGS (5)
  1. TOPROL-XL [Suspect]
     Route: 048
  2. NEXIUM [Suspect]
     Route: 048
  3. CRESTOR [Suspect]
     Route: 048
  4. ATACAND [Concomitant]
  5. METOPROLOL TARTRATE [Concomitant]

REACTIONS (2)
  - CEREBROVASCULAR ACCIDENT [None]
  - HEARING IMPAIRED [None]
